FAERS Safety Report 9057422 (Version 3)
Quarter: 2013Q2

REPORT INFORMATION
  Report Type: Report from Study
  Country: US (occurrence: US)
  Receive Date: 20130204
  Receipt Date: 20130412
  Transmission Date: 20140414
  Serious: Yes (Life-Threatening, Hospitalization, Other)
  Sender: FDA-Public Use
  Company Number: US-ABBOTT-11P-163-0884267-00

PATIENT
  Age: 63 Year
  Sex: Female
  Weight: 103.06 kg

DRUGS (25)
  1. HUMIRA [Suspect]
     Indication: UVEITIS
     Route: 058
     Dates: start: 20111201, end: 20111201
  2. BUPROPION [Concomitant]
     Indication: DEPRESSION
     Route: 048
     Dates: start: 2011
  3. FOLATE [Concomitant]
     Indication: TOXICITY TO VARIOUS AGENTS
     Route: 048
     Dates: start: 20110929
  4. FOLATE [Concomitant]
     Indication: PROPHYLAXIS
  5. GLUCOSAMINE [Concomitant]
     Indication: SUPPLEMENTATION THERAPY
     Route: 048
     Dates: start: 2011
  6. GLUCOSAMINE [Concomitant]
     Indication: ARTHROPATHY
  7. IBUPROFEN [Concomitant]
     Indication: HEADACHE
     Route: 048
     Dates: start: 2011
  8. IBUPROFEN [Concomitant]
     Indication: ARTHRALGIA
  9. METHOTREXATE [Concomitant]
     Indication: PRODUCT USED FOR UNKNOWN INDICATION
     Route: 030
     Dates: start: 20110812, end: 20111214
  10. TIMOLOL [Concomitant]
     Indication: INTRAOCULAR PRESSURE TEST
     Route: 061
     Dates: start: 20110812
  11. TRIAMCINOLONE [Concomitant]
     Indication: DRY SKIN
     Route: 061
     Dates: start: 2006
  12. PREDNISOLONE ACETATE [Concomitant]
     Indication: PRODUCT USED FOR UNKNOWN INDICATION
     Dates: start: 20110825, end: 20110921
  13. PREDNISONE [Concomitant]
     Indication: PRODUCT USED FOR UNKNOWN INDICATION
     Route: 048
     Dates: start: 20110901, end: 20110921
  14. PREDNISONE [Concomitant]
     Route: 048
     Dates: start: 20111006, end: 20111012
  15. PREDNISONE [Concomitant]
     Route: 048
     Dates: start: 20111110, end: 20111116
  16. PREDNISONE [Concomitant]
     Route: 048
     Dates: start: 20111013, end: 20111019
  17. PREDNISONE [Concomitant]
     Route: 048
     Dates: start: 20111117, end: 20111122
  18. PREDNISONE [Concomitant]
     Route: 048
     Dates: start: 20111020, end: 20111026
  19. PREDNISONE [Concomitant]
     Route: 048
     Dates: start: 20110922, end: 20111005
  20. PREDNISONE [Concomitant]
     Route: 048
     Dates: start: 20111027, end: 20111102
  21. PREDNISONE [Concomitant]
     Route: 048
     Dates: start: 20111103, end: 20111109
  22. CORTICOSTEROIDS [Concomitant]
     Indication: PRODUCT USED FOR UNKNOWN INDICATION
     Dosage: BOTH EYES
     Route: 047
     Dates: start: 20110922, end: 20110929
  23. CORTICOSTEROIDS [Concomitant]
     Dosage: BOTH EYES
     Route: 047
     Dates: start: 20110930, end: 20111006
  24. CYCLOGYL [Concomitant]
     Indication: PRODUCT USED FOR UNKNOWN INDICATION
     Dates: start: 20111122, end: 20120209
  25. OXYCODONE [Concomitant]
     Indication: PAIN
     Route: 048
     Dates: start: 201112

REACTIONS (7)
  - Renal failure acute [Not Recovered/Not Resolved]
  - Pneumothorax [Recovered/Resolved]
  - Aspergillus infection [Recovered/Resolved]
  - Septic shock [Recovered/Resolved]
  - Generalised oedema [Recovered/Resolved]
  - Urinary tract infection [Recovered/Resolved]
  - Gastric ulcer [Recovered/Resolved]
